FAERS Safety Report 6405302-5 (Version None)
Quarter: 2009Q4

REPORT INFORMATION
  Report Type: 
  Country: None (occurrence: None)
  Receive Date: 20091016
  Receipt Date: 20091016
  Transmission Date: 20100525
  Serious: Yes (Hospitalization)
  Sender: FDA-Public Use
  Company Number: None

PATIENT
  Age: 67 Year
  Sex: Female
  Weight: 67.1324 kg

DRUGS (2)
  1. CELEBREX [Suspect]
     Indication: MUSCULOSKELETAL PAIN
     Dosage: 1 DAILY PO
     Route: 048
     Dates: start: 20090725
  2. CELEBREX [Suspect]
     Indication: MUSCULOSKELETAL PAIN
     Dosage: 1 DAILY PO
     Route: 048
     Dates: start: 20090801

REACTIONS (6)
  - DIARRHOEA [None]
  - DYSPNOEA [None]
  - OEDEMA PERIPHERAL [None]
  - PRURITUS [None]
  - THROAT TIGHTNESS [None]
  - VOMITING [None]
